FAERS Safety Report 18527157 (Version 1)
Quarter: 2020Q4

REPORT INFORMATION
  Report Type: Spontaneous
  Country: GB (occurrence: GB)
  Receive Date: 20201120
  Receipt Date: 20201120
  Transmission Date: 20210114
  Serious: Yes (Other)
  Sender: FDA-Public Use
  Company Number: GB-GLAXOSMITHKLINE-GB2020228009

PATIENT
  Age: 40 Year
  Sex: Male
  Weight: 69.85 kg

DRUGS (2)
  1. GABAPENTIN. [Concomitant]
     Active Substance: GABAPENTIN
     Indication: PRODUCT USED FOR UNKNOWN INDICATION
     Dosage: 1200 MG
     Route: 065
  2. ROPINIROLE. [Suspect]
     Active Substance: ROPINIROLE
     Indication: RESTLESS LEGS SYNDROME
     Dosage: 4 MG
     Route: 048
     Dates: start: 20060601, end: 20200514

REACTIONS (2)
  - Restless legs syndrome [Unknown]
  - Condition aggravated [Unknown]

NARRATIVE: CASE EVENT DATE: 20070511
